FAERS Safety Report 5043954-5 (Version None)
Quarter: 2006Q2

REPORT INFORMATION
  Report Type: 
  Country: None (occurrence: None)
  Receive Date: 20060601
  Receipt Date: 20060419
  Transmission Date: 20061013
  Serious: No
  Sender: FDA-Public Use
  Company Number: 2006-BP-04450BP

PATIENT
  Age: 66 Year
  Sex: Male

DRUGS (4)
  1. SPIRIVA [Suspect]
     Indication: CHRONIC OBSTRUCTIVE PULMONARY DISEASE
     Dosage: 18 MG (18 MG, 1 IN 1 D) IH
     Route: 055
     Dates: start: 20060415, end: 20060419
  2. INSULIN [Concomitant]
  3. PLAVIX [Concomitant]
  4. ADVAIR DISKUS 100/50 [Concomitant]

REACTIONS (6)
  - DRY MOUTH [None]
  - DYSPHONIA [None]
  - EYE DISORDER [None]
  - INCREASED UPPER AIRWAY SECRETION [None]
  - NERVOUSNESS [None]
  - VISION BLURRED [None]
